FAERS Safety Report 21757034 (Version 2)
Quarter: 2022Q4

REPORT INFORMATION
  Report Type: Report from Study
  Country: ES (occurrence: ES)
  Receive Date: 20221220
  Receipt Date: 20221230
  Transmission Date: 20230113
  Serious: Yes (Life-Threatening, Hospitalization)
  Sender: FDA-Public Use
  Company Number: ES-EXELIXIS-XL18422058932

PATIENT
  Age: 72 Year
  Sex: Male

DRUGS (2)
  1. CABOZANTINIB [Suspect]
     Active Substance: CABOZANTINIB
     Indication: Hormone-refractory prostate cancer
     Dosage: 40 MG, QD
     Route: 048
     Dates: start: 20221028
  2. ATEZOLIZUMAB [Suspect]
     Active Substance: ATEZOLIZUMAB
     Indication: Hormone-refractory prostate cancer
     Dosage: 1200 MG, Q3WEEKS
     Route: 042
     Dates: start: 20221028

REACTIONS (2)
  - Decreased appetite [Recovered/Resolved]
  - Pulmonary embolism [Recovering/Resolving]

NARRATIVE: CASE EVENT DATE: 20221214
